FAERS Safety Report 9098916 (Version 1)
Quarter: 2013Q1

REPORT INFORMATION
  Report Type: Spontaneous
  Country: ES (occurrence: ES)
  Receive Date: 20130213
  Receipt Date: 20130213
  Transmission Date: 20140127
  Serious: Yes (Hospitalization)
  Sender: FDA-Public Use
  Company Number: ES-PFIZER INC-2013053847

PATIENT
  Age: 23 Year
  Sex: Male

DRUGS (2)
  1. TAZOCEL [Suspect]
     Indication: PYREXIA
     Dosage: 1 DF, 3X/DAY
     Route: 042
     Dates: start: 20120726, end: 20120801
  2. TARGOCID [Suspect]
     Indication: PYREXIA
     Dosage: 600 MG, 1X/DAY
     Route: 042
     Dates: start: 20120727, end: 20120802

REACTIONS (1)
  - Toxic skin eruption [Recovering/Resolving]
